FAERS Safety Report 25752253 (Version 1)
Quarter: 2025Q3

REPORT INFORMATION
  Report Type: Spontaneous
  Country: US (occurrence: US)
  Receive Date: 20250902
  Receipt Date: 20250902
  Transmission Date: 20251020
  Serious: Yes (Life-Threatening, Hospitalization, Other)
  Sender: AIPING PHARMACEUTICAL
  Company Number: US-AIPING-2025AILIT00136

PATIENT
  Age: 17 Year
  Sex: Female

DRUGS (1)
  1. AMITRIPTYLINE [Suspect]
     Active Substance: AMITRIPTYLINE
     Indication: Depression
     Route: 048

REACTIONS (5)
  - Acute respiratory distress syndrome [Recovered/Resolved]
  - Pulmonary embolism [Recovered/Resolved]
  - Bronchopleural fistula [Recovered/Resolved]
  - Suicide attempt [Unknown]
  - Intentional overdose [Unknown]
